FAERS Safety Report 8186920-3 (Version None)
Quarter: 2012Q1

REPORT INFORMATION
  Report Type: 
  Country: None (occurrence: None)
  Receive Date: 20120213
  Receipt Date: 20111017
  Transmission Date: 20120608
  Serious: No
  Sender: FDA-Public Use
  Company Number: 1000024781

PATIENT
  Age: 81 Year
  Sex: Female

DRUGS (17)
  1. CLARINEX (DESLORATADINE) (DESLORATADINE) [Concomitant]
  2. HYDROCHLOROTHIAZIDE [Concomitant]
  3. XANAX [Concomitant]
  4. AMITRIPTYLINE (AMITRIPTYLINE) (AMITRIPTYLINE) [Concomitant]
  5. ACTONEL (RISEDRONATE SODIUM) (RISEDRONATE SODIUM) [Concomitant]
  6. CALCIUM (CALCIUM) (CALCIUM) [Concomitant]
  7. SAVELLA [Suspect]
     Indication: FIBROMYALGIA
     Dosage: 25 MG BID (25 MG, 2 IN 1 D), ORAL
     Route: 048
     Dates: start: 20110922, end: 20110929
  8. SAVELLA [Suspect]
     Indication: NEUROPATHY PERIPHERAL
     Dosage: 25 MG BID (25 MG, 2 IN 1 D), ORAL
     Route: 048
     Dates: start: 20110922, end: 20110929
  9. ZETIA [Concomitant]
  10. RANITIDINE [Concomitant]
  11. POTASSIUM (POTASSIUM) (POTASSIUM) [Concomitant]
  12. VICODIN (VICODIN) (VICODIN) [Concomitant]
  13. VITAMIN D (VITAMIN D) (VITAMIN D) [Concomitant]
  14. SAVELLA [Suspect]
     Indication: FIBROMYALGIA
     Dosage: 50 MG BID (50 MG, 2 IN 1 D), ORAL
     Route: 048
     Dates: start: 20110715, end: 20110921
  15. SAVELLA [Suspect]
     Indication: NEUROPATHY PERIPHERAL
     Dosage: 50 MG BID (50 MG, 2 IN 1 D), ORAL
     Route: 048
     Dates: start: 20110715, end: 20110921
  16. METOPROLOL SUCCINATE [Concomitant]
  17. ALLERGY RELIEF MEDICATION NOS (ALLERGY RELIEF MEDICATION NOS) (ALLERGY [Concomitant]

REACTIONS (3)
  - INCREASED APPETITE [None]
  - OFF LABEL USE [None]
  - HYPERHIDROSIS [None]
